FAERS Safety Report 7586956-7 (Version None)
Quarter: 2011Q3

REPORT INFORMATION
  Report Type: 
  Country: None (occurrence: None)
  Receive Date: 20110701
  Receipt Date: 20110630
  Transmission Date: 20111222
  Serious: Yes (Other)
  Sender: FDA-Public Use
  Company Number: US-AMGEN-QUU409639

PATIENT
  Age: 6 Year
  Sex: Female

DRUGS (1)
  1. NPLATE [Suspect]
     Indication: THROMBOCYTOPENIA
     Dosage: 10 A?G/KG, UNK
     Dates: start: 20091024, end: 20091127

REACTIONS (2)
  - MEDULLOBLASTOMA [None]
  - CONVULSION [None]
